FAERS Safety Report 6149781-X (Version None)
Quarter: 2009Q2

REPORT INFORMATION
  Report Type: 
  Country: None (occurrence: None)
  Receive Date: 20090407
  Receipt Date: 20090407
  Transmission Date: 20091009
  Serious: Yes (Hospitalization)
  Sender: FDA-Public Use
  Company Number: None

PATIENT
  Age: 70 Year
  Sex: Female

DRUGS (1)
  1. ADRIAMYCIN RDF [Suspect]
     Indication: BREAST CANCER
     Dosage: IV DRIP
     Route: 041

REACTIONS (1)
  - CARDIAC FAILURE CONGESTIVE [None]
